FAERS Safety Report 7551321-5 (Version None)
Quarter: 2011Q2

REPORT INFORMATION
  Report Type: 
  Country: None (occurrence: None)
  Receive Date: 20110616
  Receipt Date: 20110610
  Transmission Date: 20111010
  Serious: Yes (Other)
  Sender: FDA-Public Use
  Company Number: US-PFIZER INC-2011128398

PATIENT
  Sex: Male

DRUGS (1)
  1. VIAGRA [Suspect]
     Dosage: 100 MG, UNK
     Dates: start: 20101227

REACTIONS (6)
  - VISION BLURRED [None]
  - VISUAL IMPAIRMENT [None]
  - OPTIC ISCHAEMIC NEUROPATHY [None]
  - MIGRAINE WITH AURA [None]
  - VITREOUS FLOATERS [None]
  - EYE PAIN [None]
